FAERS Safety Report 4786176-5 (Version None)
Quarter: 2005Q3

REPORT INFORMATION
  Report Type: 
  Country: None (occurrence: None)
  Receive Date: 20050930
  Receipt Date: 20050915
  Transmission Date: 20060218
  Serious: Yes (Hospitalization)
  Sender: FDA-Public Use
  Company Number: M-05-336

PATIENT
  Age: 73 Year
  Sex: Female
  Weight: 59.8748 kg

DRUGS (8)
  1. AMIODARONE HCL [Suspect]
     Indication: HEART RATE INCREASED
     Dosage: 200MG, QD, PO
     Route: 048
     Dates: start: 20040301, end: 20050413
  2. AMIODARONE HCL [Suspect]
     Indication: HEART RATE INCREASED
     Dosage: 100MG, QD, PO
     Route: 048
     Dates: start: 20050414
  3. COUMADIN [Concomitant]
  4. CATAPRES [Concomitant]
  5. SYNTHROID [Concomitant]
  6. POTASSIUM [Concomitant]
  7. ESGIC [Concomitant]
  8. DARVOCET [Concomitant]

REACTIONS (22)
  - ABDOMINAL PAIN UPPER [None]
  - ALOPECIA [None]
  - ANOREXIA [None]
  - ASTHENIA [None]
  - BLINDNESS UNILATERAL [None]
  - BLOOD DISORDER [None]
  - BLOOD PRESSURE INCREASED [None]
  - CONDITION AGGRAVATED [None]
  - CONSTIPATION [None]
  - COORDINATION ABNORMAL [None]
  - DIFFICULTY IN WALKING [None]
  - DRY SKIN [None]
  - FOOT FRACTURE [None]
  - HAEMORRHOIDS [None]
  - HEART RATE INCREASED [None]
  - HYPOAESTHESIA [None]
  - JOINT SPRAIN [None]
  - LOSS OF CONSCIOUSNESS [None]
  - NAUSEA [None]
  - SYNCOPE [None]
  - THYROID DISORDER [None]
  - WEIGHT DECREASED [None]
